FAERS Safety Report 16282309 (Version 1)
Quarter: 2019Q2

REPORT INFORMATION
  Report Type: Spontaneous
  Country: CL (occurrence: CL)
  Receive Date: 20190507
  Receipt Date: 20190507
  Transmission Date: 20190711
  Serious: Yes (Other)
  Sender: FDA-Public Use
  Company Number: PHHY2019CL101576

PATIENT
  Sex: Female

DRUGS (1)
  1. PACLITAXEL. [Suspect]
     Active Substance: PACLITAXEL
     Indication: OVARIAN CANCER
     Dosage: 175 MG/M2, UNK
     Route: 065

REACTIONS (3)
  - Erythema [Unknown]
  - Hypotension [Unknown]
  - Hypothermia [Unknown]
